FAERS Safety Report 7129614-5 (Version None)
Quarter: 2010Q4

REPORT INFORMATION
  Report Type: 
  Country: None (occurrence: None)
  Receive Date: 20101130
  Receipt Date: 20101124
  Transmission Date: 20110411
  Serious: Yes (Death, Hospitalization, Other)
  Sender: FDA-Public Use
  Company Number: PHEH2006US05372

PATIENT
  Sex: Female
  Weight: 80 kg

DRUGS (18)
  1. EXJADE [Suspect]
     Indication: SICKLE CELL ANAEMIA WITH CRISIS
     Dosage: 500 MG, TID
     Route: 048
     Dates: start: 20070102
  2. EXJADE [Suspect]
     Dosage: UNK
  3. LORTAB [Suspect]
     Indication: PAIN
     Dosage: 10/500, PRN
     Route: 048
  4. STEROIDS NOS [Suspect]
     Dosage: UNK, UNK
     Dates: start: 20060407, end: 20060407
  5. ABILIFY [Suspect]
     Indication: SCHIZOPHRENIA, PARANOID TYPE
     Dosage: 35 MG, QHS
     Route: 048
  6. LYRICA [Concomitant]
     Dosage: 75 MG, QD
     Route: 048
  7. ALLOPURINOL [Concomitant]
     Dosage: 30 MG, QD
     Route: 048
  8. PHENERGAN [Concomitant]
     Dosage: 25 MG, PRN
     Route: 048
  9. COUMADIN [Concomitant]
     Indication: VENA CAVA THROMBOSIS
     Dosage: 1 MG, QD
     Route: 048
  10. BENZTROPINE MESYLATE [Concomitant]
     Dosage: 1 MG, QD
     Route: 048
  11. AMBIEN [Concomitant]
     Dosage: 10 MG, QHS
     Route: 048
  12. XANAX [Concomitant]
     Dosage: 0.5 MG, PRN
     Route: 048
  13. LASIX [Concomitant]
  14. ALKERAN [Concomitant]
     Indication: HYPERSENSITIVITY
  15. HYDROXYUREA [Concomitant]
     Indication: SICKLE CELL ANAEMIA
  16. GLUCOPHAGE [Concomitant]
     Indication: DIABETES MELLITUS
  17. ZESTRIL [Concomitant]
     Indication: HYPERTENSION
  18. TRILAFON [Concomitant]
     Indication: PSYCHOTIC DISORDER

REACTIONS (14)
  - ABDOMINAL PAIN [None]
  - ANXIETY [None]
  - BACK PAIN [None]
  - BLOOD ALKALINE PHOSPHATASE INCREASED [None]
  - BLOOD GLUCOSE INCREASED [None]
  - BLOOD UREA INCREASED [None]
  - DEATH [None]
  - DIARRHOEA [None]
  - FEELING ABNORMAL [None]
  - NAUSEA [None]
  - NERVOUSNESS [None]
  - RENAL PAIN [None]
  - SCHIZOPHRENIA [None]
  - SICKLE CELL ANAEMIA WITH CRISIS [None]
